FAERS Safety Report 4653040-1 (Version None)
Quarter: 2005Q2

REPORT INFORMATION
  Report Type: 
  Country: None (occurrence: None)
  Receive Date: 20050505
  Receipt Date: 20050428
  Transmission Date: 20051028
  Serious: Yes (Death, Hospitalization, Other)
  Sender: FDA-Public Use
  Company Number: US-MERCK-0504USA05027

PATIENT
  Age: 24 Year
  Sex: Female
  Weight: 75 kg

DRUGS (6)
  1. VIOXX [Concomitant]
     Route: 048
  2. DECADRON [Suspect]
     Route: 048
     Dates: start: 20020101
  3. TEMOZOLOMIDE [Suspect]
     Indication: ANAPLASTIC ASTROCYTOMA
     Route: 065
     Dates: start: 20020301
  4. ZANTAC [Concomitant]
     Route: 048
  5. SEPTRA DS [Concomitant]
     Route: 065
     Dates: start: 20020301
  6. ATIVAN [Suspect]
     Indication: CONVULSION
     Route: 051
     Dates: start: 20020101

REACTIONS (30)
  - ABDOMINAL PAIN UPPER [None]
  - ANAPLASTIC ASTROCYTOMA [None]
  - APNOEA [None]
  - BLOOD CREATININE INCREASED [None]
  - BLUNTED AFFECT [None]
  - BONE MARROW DEPRESSION [None]
  - CANDIDIASIS [None]
  - CATHETER SITE INFECTION [None]
  - COMA [None]
  - CONVULSION [None]
  - DIABETIC KETOACIDOSIS [None]
  - DISEASE PROGRESSION [None]
  - DYSPHAGIA [None]
  - FEBRILE NEUTROPENIA [None]
  - FLUID OVERLOAD [None]
  - GENERALISED OEDEMA [None]
  - HYPOALBUMINAEMIA [None]
  - HYPOKALAEMIA [None]
  - HYPOMAGNESAEMIA [None]
  - HYPOTENSION [None]
  - INSOMNIA [None]
  - LETHARGY [None]
  - MUSCLE TWITCHING [None]
  - MUSCULAR WEAKNESS [None]
  - NAUSEA [None]
  - PLEURAL EFFUSION [None]
  - POST PROCEDURAL COMPLICATION [None]
  - SEPTIC SHOCK [None]
  - SIMPLE PARTIAL SEIZURES [None]
  - TACHYCARDIA [None]
